FAERS Safety Report 21453659 (Version 2)
Quarter: 2022Q4

REPORT INFORMATION
  Report Type: Spontaneous
  Country: US (occurrence: US)
  Receive Date: 20221013
  Receipt Date: 20221024
  Transmission Date: 20230112
  Serious: Yes (Death)
  Sender: FDA-Public Use
  Company Number: US-PFIZER INC-202201135673

PATIENT
  Age: 72 Year
  Sex: Male

DRUGS (3)
  1. RAPAMUNE [Suspect]
     Active Substance: SIROLIMUS
     Indication: Anaemia
     Dosage: 2 MG
  2. RAPAMUNE [Suspect]
     Active Substance: SIROLIMUS
     Indication: Lymphocytic leukaemia
     Dosage: 4 MG, DAILY
     Dates: start: 202206, end: 202208
  3. RAPAMUNE [Suspect]
     Active Substance: SIROLIMUS
     Indication: Lymphoma

REACTIONS (2)
  - Death [Fatal]
  - Off label use [Recovered/Resolved]

NARRATIVE: CASE EVENT DATE: 20220601
